FAERS Safety Report 4594890-X (Version None)
Quarter: 2005Q1

REPORT INFORMATION
  Report Type: 
  Country: None (occurrence: None)
  Receive Date: 20050223
  Receipt Date: 20050210
  Transmission Date: 20050727
  Serious: Yes (Death)
  Sender: FDA-Public Use
  Company Number: 2005029793

PATIENT
  Age: 47 Year
  Sex: Female

DRUGS (8)
  1. CELEBREX [Suspect]
     Indication: ARTHRALGIA
     Dosage: (100 MG), ORAL
     Route: 048
     Dates: start: 20020305
  2. CELEBREX [Suspect]
     Indication: BACK PAIN
     Dosage: (100 MG), ORAL
     Route: 048
     Dates: start: 20020305
  3. MANEVAC (ISPAGHULA, SENNA) [Concomitant]
  4. SIMVASTATIN [Concomitant]
  5. RAMIPRIL [Concomitant]
  6. TENORETIC 100 [Concomitant]
  7. ESCITALOPRAM (ESCITALOPRAM) [Concomitant]
  8. DRUG, UNSPECIFIED (DRUG, UNSPECIFIED) [Concomitant]

REACTIONS (1)
  - HAEMORRHAGE INTRACRANIAL [None]
